FAERS Safety Report 4880816-8 (Version None)
Quarter: 2006Q1

REPORT INFORMATION
  Report Type: 
  Country: None (occurrence: None)
  Receive Date: 20060110
  Receipt Date: 20050823
  Transmission Date: 20060701
  Serious: Yes (Other)
  Sender: FDA-Public Use
  Company Number: HQWYE063823AUG05

PATIENT
  Sex: Female

DRUGS (6)
  1. MYAMBUTOL [Suspect]
     Indication: MENINGITIS TUBERCULOUS
     Dosage: 25MG/KG/QD/047
  2. PYRAZINAMIDE [Concomitant]
  3. RIFAMPICIN [Concomitant]
  4. ISONIAZID [Concomitant]
  5. PYRIDOXINE HCL [Concomitant]
  6. PREDNISOLONE [Concomitant]

REACTIONS (1)
  - OPTIC NEURITIS [None]
